FAERS Safety Report 4377051-9 (Version None)
Quarter: 2004Q2

REPORT INFORMATION
  Report Type: 
  Country: None (occurrence: None)
  Receive Date: 20040614
  Receipt Date: 20040506
  Transmission Date: 20050107
  Serious: Yes (Hospitalization)
  Sender: FDA-Public Use
  Company Number: SE-ROCHE-367585

PATIENT
  Age: 57 Year
  Sex: Male

DRUGS (46)
  1. DACLIZUMAB [Suspect]
     Route: 042
     Dates: start: 20040428, end: 20040428
  2. DACLIZUMAB [Suspect]
     Route: 042
     Dates: start: 20040506, end: 20040506
  3. MYCOPHENOLATE MOFETIL [Suspect]
     Route: 042
     Dates: start: 20040428, end: 20040502
  4. MYCOPHENOLATE MOFETIL [Suspect]
     Route: 048
     Dates: start: 20040503, end: 20040601
  5. MYCOPHENOLATE MOFETIL [Suspect]
     Route: 048
     Dates: start: 20040602, end: 20040602
  6. MYCOPHENOLATE MOFETIL [Suspect]
     Route: 048
     Dates: start: 20040603
  7. METHYLPREDNISOLONE [Suspect]
     Route: 065
     Dates: start: 20040427, end: 20040427
  8. METHYLPREDNISOLONE [Suspect]
     Route: 065
     Dates: start: 20040526, end: 20040526
  9. PREDNISOLONE [Suspect]
     Route: 065
     Dates: start: 20040428, end: 20040428
  10. PREDNISOLONE [Suspect]
     Route: 065
     Dates: start: 20040429, end: 20040429
  11. PREDNISOLONE [Suspect]
     Route: 065
     Dates: start: 20040430, end: 20040430
  12. PREDNISOLONE [Suspect]
     Route: 065
     Dates: start: 20040501, end: 20040501
  13. PREDNISOLONE [Suspect]
     Route: 065
     Dates: start: 20040502, end: 20040513
  14. PREDNISOLONE [Suspect]
     Route: 065
     Dates: start: 20040514, end: 20040518
  15. PREDNISOLONE [Suspect]
     Route: 065
     Dates: start: 20040519, end: 20040526
  16. PREDNISOLONE [Suspect]
     Route: 065
     Dates: start: 20040527, end: 20040527
  17. PREDNISOLONE [Suspect]
     Route: 065
     Dates: start: 20040528, end: 20040529
  18. PREDNISOLONE [Suspect]
     Route: 065
     Dates: start: 20040530, end: 20040531
  19. PREDNISOLONE [Suspect]
     Route: 065
     Dates: start: 20040601, end: 20040602
  20. PREDNISOLONE [Suspect]
     Route: 065
     Dates: start: 20040603
  21. TACROLIMUS [Suspect]
     Route: 048
     Dates: start: 20040427, end: 20040428
  22. TACROLIMUS [Suspect]
     Route: 048
     Dates: start: 20040430, end: 20040502
  23. TACROLIMUS [Suspect]
     Route: 048
     Dates: start: 20040503, end: 20040505
  24. TACROLIMUS [Suspect]
     Route: 048
     Dates: start: 20040506, end: 20040512
  25. TACROLIMUS [Suspect]
     Route: 048
     Dates: start: 20040513, end: 20040513
  26. TACROLIMUS [Suspect]
     Route: 048
     Dates: start: 20040514, end: 20040521
  27. TACROLIMUS [Suspect]
     Route: 048
     Dates: start: 20040522, end: 20040523
  28. TACROLIMUS [Suspect]
     Route: 048
     Dates: start: 20040524, end: 20040527
  29. TACROLIMUS [Suspect]
     Route: 048
     Dates: start: 20040528, end: 20040528
  30. TACROLIMUS [Suspect]
     Route: 048
     Dates: start: 20040529, end: 20040530
  31. TACROLIMUS [Suspect]
     Route: 048
     Dates: start: 20040531
  32. PANTOPRAZOL [Concomitant]
     Dates: start: 20040317
  33. MEROPENEM [Concomitant]
     Indication: INFECTION PROPHYLAXIS
     Dates: start: 20040427
  34. AMPHOTERICIN B [Concomitant]
     Indication: INFECTION PROPHYLAXIS
     Dates: start: 20040427
  35. FITOMENADION [Concomitant]
     Dates: start: 20040428, end: 20040507
  36. DALTEPARIN [Concomitant]
     Indication: THROMBOSIS PROPHYLAXIS
     Dates: start: 20040428, end: 20040514
  37. ALBUMIN (HUMAN) [Concomitant]
     Indication: HYPOALBUMINAEMIA
     Dosage: ALBUMIN INFUSION
     Route: 050
     Dates: start: 20040502, end: 20040508
  38. VANCOMYCIN [Concomitant]
     Indication: WOUND INFECTION
     Dates: start: 20040505
  39. VALGANCICLOVIR [Concomitant]
     Indication: INFECTION PROPHYLAXIS
     Route: 065
     Dates: start: 20040511
  40. ASPIRIN [Concomitant]
     Route: 065
     Dates: start: 20040528
  41. ACTRAPID [Concomitant]
     Dates: start: 20040527
  42. DIAZEPAM [Concomitant]
     Route: 065
     Dates: start: 20040506, end: 20040514
  43. NATRIUM PICOSULFATE [Concomitant]
     Indication: CONSTIPATION PROPHYLAXIS
     Dates: start: 20040508, end: 20040521
  44. TRAMADOL HCL [Concomitant]
     Dates: start: 20040501, end: 20040522
  45. ACETAMINOPHEN [Concomitant]
     Dates: start: 20040501, end: 20040522
  46. PENTAMIDIN [Concomitant]
     Indication: INFECTION PROPHYLAXIS
     Dates: start: 20040513, end: 20040513

REACTIONS (14)
  - BACTERIAL INFECTION [None]
  - BLOOD ALBUMIN DECREASED [None]
  - BLOOD CULTURE POSITIVE [None]
  - CHOLANGITIS [None]
  - DIABETES MELLITUS [None]
  - HEPATIC ARTERY THROMBOSIS [None]
  - HEPATIC ENZYME INCREASED [None]
  - KLEBSIELLA INFECTION [None]
  - LABORATORY TEST ABNORMAL [None]
  - LIVER TRANSPLANT REJECTION [None]
  - POST PROCEDURAL BILE LEAK [None]
  - SEPSIS [None]
  - THROMBOCYTHAEMIA [None]
  - WOUND INFECTION [None]
